FAERS Safety Report 21487892 (Version 1)
Quarter: 2022Q4

REPORT INFORMATION
  Report Type: Spontaneous
  Country: FR (occurrence: FR)
  Receive Date: 20221020
  Receipt Date: 20221020
  Transmission Date: 20230113
  Serious: Yes (Other)
  Sender: FDA-Public Use
  Company Number: None

PATIENT
  Age: 31 Year
  Sex: Male

DRUGS (4)
  1. BUPRENORPHINE [Suspect]
     Active Substance: BUPRENORPHINE
     Dosage: 10 MG/J
  2. HEROIN [Suspect]
     Active Substance: DIAMORPHINE
  3. ALCOHOL [Suspect]
     Active Substance: ALCOHOL
     Route: 048
  4. COCAINE [Suspect]
     Active Substance: COCAINE
     Route: 055

REACTIONS (1)
  - Substance use disorder [Not Recovered/Not Resolved]
